FAERS Safety Report 5163552-2 (Version None)
Quarter: 2006Q4

REPORT INFORMATION
  Report Type: 
  Country: None (occurrence: None)
  Receive Date: 20061124
  Receipt Date: 20061114
  Transmission Date: 20070319
  Serious: Yes (Hospitalization, Other)
  Sender: FDA-Public Use
  Company Number: 2006141297

PATIENT
  Age: 48 Year
  Sex: Female

DRUGS (4)
  1. ADRIAMYCIN PFS [Suspect]
     Indication: BREAST CANCER METASTATIC
     Dates: start: 20020101, end: 20021201
  2. TAXOTERE [Suspect]
     Indication: BREAST CANCER METASTATIC
     Dates: start: 20021001, end: 20021201
  3. PERIACTIN [Concomitant]
  4. CYCLOPHOSPHAMIDE [Concomitant]

REACTIONS (14)
  - AUTOIMMUNE THYROIDITIS [None]
  - CARDIOMYOPATHY [None]
  - CHEST PAIN [None]
  - DIASTOLIC DYSFUNCTION [None]
  - DYSPHONIA [None]
  - DYSPNOEA EXERTIONAL [None]
  - EJECTION FRACTION DECREASED [None]
  - GAIT DISTURBANCE [None]
  - NEUROPATHY PERIPHERAL [None]
  - OXYGEN SATURATION DECREASED [None]
  - PANCREATITIS ACUTE [None]
  - PULMONARY FIBROSIS [None]
  - SINUS TACHYCARDIA [None]
  - TRICUSPID VALVE INCOMPETENCE [None]
